FAERS Safety Report 11697649 (Version 2)
Quarter: 2016Q1

REPORT INFORMATION
  Report Type: Spontaneous
  Country: US (occurrence: US)
  Receive Date: 20151104
  Receipt Date: 20160102
  Transmission Date: 20160525
  Serious: No
  Sender: FDA-Public Use
  Company Number: US-ALEXION-A201504122

PATIENT
  Sex: Female

DRUGS (2)
  1. SOLIRIS [Suspect]
     Active Substance: ECULIZUMAB
     Indication: GLOMERULONEPHRITIS
     Dosage: UNK
     Route: 042
  2. SOLIRIS [Suspect]
     Active Substance: ECULIZUMAB
     Indication: OFF LABEL USE
     Dosage: 1200 MG, UNK
     Route: 042

REACTIONS (6)
  - Exposure during pregnancy [Not Recovered/Not Resolved]
  - Blood albumin decreased [Unknown]
  - Oedema [Unknown]
  - Malaise [Unknown]
  - Off label use [Unknown]
  - Fatigue [Unknown]
